FAERS Safety Report 16778591 (Version 6)
Quarter: 2021Q4

REPORT INFORMATION
  Report Type: Report from Study
  Country: JP (occurrence: JP)
  Receive Date: 20190906
  Receipt Date: 20211222
  Transmission Date: 20220303
  Serious: Yes (Hospitalization)
  Sender: FDA-Public Use
  Company Number: JP-ABBVIE-18S-087-2575055-00

PATIENT
  Age: 47 Year
  Sex: Female
  Weight: 60 kg

DRUGS (19)
  1. CARBIDOPA\LEVODOPA [Suspect]
     Active Substance: CARBIDOPA\LEVODOPA
     Indication: Parkinson^s disease
     Dosage: MD: 5 ML CD: 1.7 ML / HR X16 HRS
     Route: 050
     Dates: start: 20180801, end: 20190716
  2. CARBIDOPA\LEVODOPA [Suspect]
     Active Substance: CARBIDOPA\LEVODOPA
     Dosage: MD: 5 ML?CD: 2.5 ML/HR X 16 HRS?ED: 1.5 ML/UNIT X 5
     Route: 050
     Dates: start: 20190716, end: 20191010
  3. CARBIDOPA\LEVODOPA [Suspect]
     Active Substance: CARBIDOPA\LEVODOPA
     Dosage: MD: 8 ML?CD: 2.5 ML/HR X 16 HRS?ED: 1.5 ML/UNIT X 5
     Route: 050
     Dates: start: 20191010, end: 20191029
  4. CARBIDOPA\LEVODOPA [Suspect]
     Active Substance: CARBIDOPA\LEVODOPA
     Dosage: MD: 6.5 ML?CD: 2.5 ML/HR X 16 HRS?ED: 1.5 ML/UNIT X 4
     Route: 050
     Dates: start: 20191029, end: 20191031
  5. CARBIDOPA\LEVODOPA [Suspect]
     Active Substance: CARBIDOPA\LEVODOPA
     Dosage: MD: 6.5 ML?CD: 2.8 ML/HR X 16 HRS?ED: 1.5 ML/UNIT X 1
     Route: 050
     Dates: start: 20191031, end: 20200122
  6. CARBIDOPA\LEVODOPA [Suspect]
     Active Substance: CARBIDOPA\LEVODOPA
     Dosage: MD: 5.0 ML?CD: 2.0 ML/HR X 16 HRS?ED: 1.5 ML/UNIT X 1
     Route: 050
     Dates: start: 20200122
  7. ROTIGOTINE [Concomitant]
     Active Substance: ROTIGOTINE
     Indication: Parkinson^s disease
     Route: 062
     Dates: end: 20190429
  8. ROTIGOTINE [Concomitant]
     Active Substance: ROTIGOTINE
     Dates: start: 20200107
  9. MAGNESIUM OXIDE [Concomitant]
     Active Substance: MAGNESIUM OXIDE
     Indication: Product used for unknown indication
     Route: 048
  10. FLUVOXAMINE MALEATE [Concomitant]
     Active Substance: FLUVOXAMINE MALEATE
     Indication: Product used for unknown indication
     Route: 048
  11. SUVOREXANT [Concomitant]
     Active Substance: SUVOREXANT
     Indication: Product used for unknown indication
     Route: 048
  12. PITAVASTATIN CALCIUM HYDRATE [Concomitant]
     Indication: Product used for unknown indication
     Route: 048
  13. IMIDAFENACIN [Concomitant]
     Active Substance: IMIDAFENACIN
     Indication: Product used for unknown indication
     Route: 048
  14. OMEPRAZOLE [Concomitant]
     Active Substance: OMEPRAZOLE
     Indication: Product used for unknown indication
     Route: 048
     Dates: start: 20180921
  15. REBAMIPIDE [Concomitant]
     Active Substance: REBAMIPIDE
     Indication: Product used for unknown indication
     Route: 048
     Dates: start: 20180801
  16. ACETAMINOPHEN [Concomitant]
     Active Substance: ACETAMINOPHEN
     Indication: Product used for unknown indication
     Route: 048
     Dates: start: 20190426, end: 20200824
  17. LUVOX [Concomitant]
     Active Substance: FLUVOXAMINE MALEATE
     Indication: Product used for unknown indication
     Route: 065
     Dates: end: 20181203
  18. CARBIDOPA AND LEVODOPA [Concomitant]
     Active Substance: CARBIDOPA\LEVODOPA
     Indication: Parkinson^s disease
     Route: 048
     Dates: start: 20190422
  19. LOXOPROFEN SODIUM DIHYDRATE [Concomitant]
     Active Substance: LOXOPROFEN SODIUM DIHYDRATE
     Indication: Product used for unknown indication
     Route: 048
     Dates: start: 20200825

REACTIONS (8)
  - Osteoarthritis [Recovered/Resolved]
  - Depression [Recovering/Resolving]
  - Malaise [Recovered/Resolved]
  - Dyskinesia [Recovering/Resolving]
  - On and off phenomenon [Recovered/Resolved]
  - Abdominal pain [Recovered/Resolved]
  - Vomiting [Recovered/Resolved]
  - Device dislocation [Recovered/Resolved]

NARRATIVE: CASE EVENT DATE: 20181124
